FAERS Safety Report 9244570 (Version 2)
Quarter: 2013Q2

REPORT INFORMATION
  Report Type: Spontaneous
  Country: US (occurrence: US)
  Receive Date: 20130422
  Receipt Date: 20130624
  Transmission Date: 20140414
  Serious: Yes (Death, Life-Threatening, Hospitalization)
  Sender: FDA-Public Use
  Company Number: US-JNJFOC-20130409196

PATIENT
  Sex: Female

DRUGS (2)
  1. TYLENOL [Suspect]
     Route: 065
  2. TYLENOL [Suspect]
     Indication: DYSMENORRHOEA
     Route: 065

REACTIONS (2)
  - Renal injury [Fatal]
  - Intentional drug misuse [Fatal]
